FAERS Safety Report 6081394-0 (Version None)
Quarter: 2009Q1

REPORT INFORMATION
  Report Type: 
  Country: None (occurrence: None)
  Receive Date: 20090218
  Receipt Date: 20090210
  Transmission Date: 20090719
  Serious: Yes (Life-Threatening)
  Sender: FDA-Public Use
  Company Number: US-CELGENEUS-163-21880-09011186

PATIENT
  Sex: Male

DRUGS (16)
  1. REVLIMID [Suspect]
     Indication: MULTIPLE MYELOMA
     Route: 048
     Dates: start: 20081107, end: 20081109
  2. REVLIMID [Suspect]
     Route: 048
     Dates: start: 20081023
  3. REVLIMID [Suspect]
     Route: 048
     Dates: start: 20080905, end: 20081020
  4. REVLIMID [Suspect]
     Dosage: 10MG-5MG
     Route: 048
     Dates: start: 20070427, end: 20070901
  5. REVLIMID [Suspect]
     Route: 048
     Dates: start: 20081023
  6. REVLIMID [Suspect]
     Route: 048
     Dates: start: 20081101, end: 20081130
  7. REVLIMID [Suspect]
     Route: 048
     Dates: start: 20081229
  8. LYRICA [Concomitant]
     Route: 065
     Dates: start: 20070901
  9. VICODIN [Concomitant]
     Indication: PAIN
     Route: 065
     Dates: start: 20040101
  10. ZITHROMAX [Concomitant]
     Indication: DRUG USE FOR UNKNOWN INDICATION
     Route: 065
  11. CALCIUM [Concomitant]
     Indication: MULTIPLE MYELOMA
     Route: 065
     Dates: start: 20050101
  12. ARANESP [Concomitant]
     Route: 065
     Dates: start: 20050101
  13. WARFARIN SODIUM [Concomitant]
     Indication: PROPHYLAXIS
     Route: 065
     Dates: start: 20050101, end: 20080101
  14. ASPIRIN [Concomitant]
     Indication: PROPHYLAXIS
     Route: 065
     Dates: start: 20050101
  15. PREVACID [Concomitant]
     Route: 065
     Dates: start: 20050101
  16. DIGOXIN [Concomitant]
     Indication: ATRIAL FIBRILLATION
     Route: 065
     Dates: start: 20060101

REACTIONS (5)
  - NASOPHARYNGITIS [None]
  - NEUTROPENIA [None]
  - THROMBOCYTOPENIA [None]
  - UNDERDOSE [None]
  - UPPER RESPIRATORY TRACT INFECTION [None]
